FAERS Safety Report 5429132-6 (Version None)
Quarter: 2007Q3

REPORT INFORMATION
  Report Type: 
  Country: None (occurrence: None)
  Receive Date: 20070829
  Receipt Date: 20070822
  Transmission Date: 20080115
  Serious: Yes (Other)
  Sender: FDA-Public Use
  Company Number: US-AMGEN-US239823

PATIENT
  Sex: Male

DRUGS (9)
  1. ARANESP [Suspect]
     Indication: ANAEMIA
     Dates: start: 20061212
  2. POTASSIUM CHLORIDE [Concomitant]
  3. BACTRIM [Concomitant]
  4. HYDRODIURIL [Concomitant]
  5. LEXAPRO [Concomitant]
  6. IRON [Concomitant]
  7. ASCORBIC ACID [Concomitant]
  8. MULTIVIT [Concomitant]
  9. ALLOPURINOL [Concomitant]

REACTIONS (2)
  - BONE MARROW DISORDER [None]
  - THERAPEUTIC RESPONSE DECREASED [None]
